FAERS Safety Report 8037860-1 (Version None)
Quarter: 2012Q1

REPORT INFORMATION
  Report Type: 
  Country: None (occurrence: None)
  Receive Date: 20120111
  Receipt Date: 20120106
  Transmission Date: 20120608
  Serious: Yes (Hospitalization)
  Sender: FDA-Public Use
  Company Number: PHHY2012US001303

PATIENT
  Age: 60 Year
  Sex: Female

DRUGS (1)
  1. AMLODIPINE [Suspect]

REACTIONS (4)
  - UNRESPONSIVE TO STIMULI [None]
  - ANGIOEDEMA [None]
  - SWELLING FACE [None]
  - PERIORBITAL OEDEMA [None]
